FAERS Safety Report 7910315-8 (Version None)
Quarter: 2011Q4

REPORT INFORMATION
  Report Type: 
  Country: None (occurrence: None)
  Receive Date: 20111111
  Receipt Date: 20111104
  Transmission Date: 20120403
  Serious: Yes (Other)
  Sender: FDA-Public Use
  Company Number: IT-JNJFOC-20111103128

PATIENT
  Age: 53 Year
  Sex: Female

DRUGS (4)
  1. RISPERDAL [Suspect]
     Route: 048
     Dates: start: 20111104
  2. MIRTAZAPINE [Suspect]
     Indication: PRODUCT USED FOR UNKNOWN INDICATION
     Route: 048
  3. RISPERDAL [Suspect]
     Indication: PRODUCT USED FOR UNKNOWN INDICATION
     Route: 048
  4. AKINETON [Suspect]
     Indication: PRODUCT USED FOR UNKNOWN INDICATION
     Route: 048

REACTIONS (4)
  - INTENTIONAL DRUG MISUSE [None]
  - COMA [None]
  - PAIN [None]
  - SELF INJURIOUS BEHAVIOUR [None]
